FAERS Safety Report 10668642 (Version 1)
Quarter: 2014Q4

REPORT INFORMATION
  Report Type: Spontaneous
  Country: US (occurrence: None)
  Receive Date: 20141217
  Receipt Date: 20141217
  Transmission Date: 20150529
  Serious: No
  Sender: FDA-Public Use
  Company Number: 2014CT000104

PATIENT
  Age: 43 Year
  Sex: Female
  Weight: 122.47 kg

DRUGS (3)
  1. PROLOSEC [Concomitant]
  2. FUSION PLUS [Concomitant]
  3. KORLYM [Suspect]
     Active Substance: MIFEPRISTONE
     Indication: CUSHING^S SYNDROME
     Route: 048
     Dates: start: 20140713

REACTIONS (8)
  - Oedema peripheral [None]
  - Nausea [None]
  - Fatigue [None]
  - Headache [None]
  - Amenorrhoea [None]
  - Decreased appetite [None]
  - Myalgia [None]
  - Musculoskeletal stiffness [None]

NARRATIVE: CASE EVENT DATE: 2014
